FAERS Safety Report 5549402-0 (Version None)
Quarter: 2007Q4

REPORT INFORMATION
  Report Type: 
  Country: None (occurrence: None)
  Receive Date: 20071212
  Receipt Date: 20070516
  Transmission Date: 20080405
  Serious: No
  Sender: FDA-Public Use
  Company Number: US-AMGEN-KDL222458

PATIENT
  Sex: Male

DRUGS (2)
  1. ENBREL [Suspect]
     Indication: PSORIASIS
     Route: 058
     Dates: start: 20070428
  2. METHOTREXATE [Concomitant]
     Dates: start: 20070128

REACTIONS (8)
  - ANOREXIA [None]
  - DEPRESSION [None]
  - DRY MOUTH [None]
  - FATIGUE [None]
  - HYPOVENTILATION [None]
  - INJECTION SITE PAIN [None]
  - RESPIRATORY RATE DECREASED [None]
  - SOMNOLENCE [None]
